FAERS Safety Report 7690458-7 (Version None)
Quarter: 2011Q3

REPORT INFORMATION
  Report Type: 
  Country: None (occurrence: None)
  Receive Date: 20110818
  Receipt Date: 20110812
  Transmission Date: 20111222
  Serious: Yes (Life-Threatening, Hospitalization)
  Sender: FDA-Public Use
  Company Number: US-US-EMD SERONO, INC.-7076514

PATIENT
  Sex: Female

DRUGS (2)
  1. REBIF [Suspect]
     Indication: MULTIPLE SCLEROSIS
     Route: 058
     Dates: start: 20110729
  2. REBIF [Suspect]
     Dates: start: 20110812

REACTIONS (5)
  - RIB FRACTURE [None]
  - FALL [None]
  - TRAUMATIC LUNG INJURY [None]
  - MUSCLE STRAIN [None]
  - CLAVICLE FRACTURE [None]
